FAERS Safety Report 24217556 (Version 1)
Quarter: 2024Q3

REPORT INFORMATION
  Report Type: Spontaneous
  Country: US (occurrence: US)
  Receive Date: 20240816
  Receipt Date: 20240816
  Transmission Date: 20241017
  Serious: Yes (Other)
  Sender: PFIZER
  Company Number: US-PFIZER INC-202400234887

PATIENT
  Age: 65 Year

DRUGS (4)
  1. ADCETRIS [Suspect]
     Active Substance: BRENTUXIMAB VEDOTIN
     Indication: Hodgkin^s disease
     Dosage: 6 CYCLES
  2. DOXORUBICIN HYDROCHLORIDE [Suspect]
     Active Substance: DOXORUBICIN HYDROCHLORIDE
     Dosage: 6 CYCLES
  3. VINBLASTINE [Suspect]
     Active Substance: VINBLASTINE
     Dosage: 6 CYCLES
  4. DACARBAZINE [Suspect]
     Active Substance: DACARBAZINE
     Dosage: 6 CYCLES

REACTIONS (2)
  - Neuropathy peripheral [Not Recovered/Not Resolved]
  - Neoplasm recurrence [Not Recovered/Not Resolved]
